FAERS Safety Report 4820033-0 (Version None)
Quarter: 2005Q4

REPORT INFORMATION
  Report Type: 
  Country: None (occurrence: None)
  Receive Date: 20051031
  Receipt Date: 20050711
  Transmission Date: 20060501
  Serious: No
  Sender: FDA-Public Use
  Company Number: WAES 0507USA01396

PATIENT
  Sex: Female

DRUGS (3)
  1. EMEND [Suspect]
     Indication: NAUSEA
     Dosage: SEE IMAGE
     Route: 048
  2. THERAPY UNSPECIFIED [Concomitant]
  3. EMEND [Suspect]
     Indication: NAUSEA
     Dosage: 80 MG/DAILY/PO
     Route: 048

REACTIONS (1)
  - BLOOD PRESSURE INCREASED [None]
